FAERS Safety Report 18277125 (Version 1)
Quarter: 2020Q3

REPORT INFORMATION
  Report Type: Spontaneous
  Country: US (occurrence: US)
  Receive Date: 20200917
  Receipt Date: 20200917
  Transmission Date: 20201103
  Serious: No
  Sender: FDA-Public Use
  Company Number: US-ALLERGAN-2023319US

PATIENT
  Age: 76 Year
  Sex: Male
  Weight: 68.93 kg

DRUGS (2)
  1. SUCRALFATE ? BP [Suspect]
     Active Substance: SUCRALFATE
     Indication: ABDOMINAL PAIN UPPER
     Dosage: 2 G, BID
     Route: 048
     Dates: start: 20200512, end: 20200608
  2. SUCRALFATE ? BP [Suspect]
     Active Substance: SUCRALFATE
     Dosage: 1 G, BID
     Route: 048
     Dates: start: 20200316, end: 20200511

REACTIONS (3)
  - Pruritus [Not Recovered/Not Resolved]
  - Rash [Not Recovered/Not Resolved]
  - Drug ineffective [Unknown]

NARRATIVE: CASE EVENT DATE: 20200607
